FAERS Safety Report 6973376-9 (Version None)
Quarter: 2010Q3

REPORT INFORMATION
  Report Type: 
  Country: None (occurrence: None)
  Receive Date: 20100909
  Receipt Date: 20100906
  Transmission Date: 20110219
  Serious: Yes (Death, Hospitalization, Other)
  Sender: FDA-Public Use
  Company Number: JP-EISAI INC.-E2020-07016-SPO-JP

PATIENT
  Age: 66 Year
  Sex: Male
  Weight: 41 kg

DRUGS (18)
  1. ARICEPT [Suspect]
     Indication: DEMENTIA
     Dosage: UNKNOWN
     Route: 048
  2. VFEND [Suspect]
     Indication: ASPERGILLOSIS
     Route: 048
     Dates: end: 20091215
  3. VFEND [Suspect]
     Route: 048
     Dates: end: 20091226
  4. VFEND [Suspect]
     Route: 042
     Dates: end: 20100117
  5. LENDORMIN [Suspect]
     Indication: PRODUCT USED FOR UNKNOWN INDICATION
     Dosage: UNKNOWN
     Route: 048
  6. MEROPEN [Suspect]
     Indication: ASPERGILLOSIS
     Dosage: UNKNOWN
     Route: 042
     Dates: end: 20091228
  7. AMPHOTERICIN B [Suspect]
     Indication: PRODUCT USED FOR UNKNOWN INDICATION
     Route: 042
  8. CIPROFLOXACIN HCL [Suspect]
     Indication: PRODUCT USED FOR UNKNOWN INDICATION
     Dosage: UNKNOWN
  9. VANCOMYCIN [Suspect]
     Indication: PRODUCT USED FOR UNKNOWN INDICATION
     Dosage: UNKNOWN
     Route: 042
  10. MICARDIS [Concomitant]
     Route: 048
  11. FLUITRAN [Concomitant]
     Route: 048
  12. ASPIRIN [Concomitant]
     Route: 048
  13. FLAVERIC [Concomitant]
     Route: 048
  14. MUCODYNE [Concomitant]
     Route: 048
  15. FAMOSTAGINE-D [Concomitant]
     Route: 048
  16. HUMALOG MIX [Concomitant]
  17. HUMULIN R [Concomitant]
  18. HUMALOG [Concomitant]

REACTIONS (8)
  - BRONCHOPULMONARY ASPERGILLOSIS [None]
  - DEATH [None]
  - DIZZINESS [None]
  - DRUG LEVEL INCREASED [None]
  - EYE ROLLING [None]
  - FEELING ABNORMAL [None]
  - HEPATIC FUNCTION ABNORMAL [None]
  - HICCUPS [None]
